FAERS Safety Report 8586418-4 (Version None)
Quarter: 2012Q3

REPORT INFORMATION
  Report Type: 
  Country: None (occurrence: None)
  Receive Date: 20120810
  Receipt Date: 20120803
  Transmission Date: 20120928
  Serious: Yes (Hospitalization, Other)
  Sender: FDA-Public Use
  Company Number: AR-AMGEN-ARGSP2012047267

PATIENT
  Age: 53 Year
  Sex: Female

DRUGS (5)
  1. CALCIUM [Concomitant]
     Dosage: UNK
  2. DELTASONE                          /00016001/ [Concomitant]
     Dosage: UNK
  3. NAPROXEN [Concomitant]
     Dosage: UNK
  4. HYDROXYCHLOROQUINE SULFATE [Concomitant]
     Dosage: UNK
  5. ENBREL [Suspect]
     Indication: RHEUMATOID ARTHRITIS
     Dosage: 50 MG, WEEKLY
     Route: 058
     Dates: start: 20081125, end: 20120101

REACTIONS (5)
  - RHEUMATOID ARTHRITIS [None]
  - EYELID INFECTION [None]
  - ARTHROPOD BITE [None]
  - HERPES ZOSTER [None]
  - VISUAL IMPAIRMENT [None]
